FAERS Safety Report 5058262-6 (Version None)
Quarter: 2006Q2

REPORT INFORMATION
  Report Type: 
  Country: None (occurrence: None)
  Receive Date: 20060627
  Receipt Date: 20051219
  Transmission Date: 20061013
  Serious: Yes (Other)
  Sender: FDA-Public Use
  Company Number: 429089

PATIENT
  Age: 58 Year
  Sex: Male

DRUGS (1)
  1. INTERFERON ALFA (INTERFERON ALFA) [Suspect]
     Indication: RENAL CANCER METASTATIC
     Dosage: 7 MILLIONIU 1 PER WEEK

REACTIONS (1)
  - FACTOR VIII INHIBITION [None]
